FAERS Safety Report 5107944-6 (Version None)
Quarter: 2006Q3

REPORT INFORMATION
  Report Type: 
  Country: None (occurrence: None)
  Receive Date: 20060919
  Receipt Date: 20060906
  Transmission Date: 20061208
  Serious: Yes (Other)
  Sender: FDA-Public Use
  Company Number: ES-AMGEN-UK192852

PATIENT
  Sex: Male

DRUGS (2)
  1. MIMPARA [Suspect]
     Indication: HYPERPARATHYROIDISM SECONDARY
     Route: 065
  2. ANTIHYPERTENSIVES [Concomitant]
     Route: 065

REACTIONS (2)
  - HYPERTENSION [None]
  - HYPERTENSIVE CRISIS [None]
